FAERS Safety Report 9273844 (Version 1)
Quarter: 2013Q2

REPORT INFORMATION
  Report Type: Spontaneous
  Country: US (occurrence: US)
  Receive Date: 20130506
  Receipt Date: 20130506
  Transmission Date: 20140414
  Serious: No
  Sender: FDA-Public Use
  Company Number: US-AMGEN-USASP2013026763

PATIENT
  Age: 50 Year
  Sex: Male

DRUGS (1)
  1. ENBREL [Suspect]
     Indication: PSORIASIS
     Dosage: 50 MG, ONCE EVERY TEN DAYS
     Dates: start: 20120501

REACTIONS (3)
  - Muscle rupture [Not Recovered/Not Resolved]
  - Contusion [Not Recovered/Not Resolved]
  - Pain in extremity [Not Recovered/Not Resolved]
